FAERS Safety Report 20431217 (Version 1)
Quarter: 2022Q1

REPORT INFORMATION
  Report Type: Spontaneous
  Country: US (occurrence: US)
  Receive Date: 20220204
  Receipt Date: 20220204
  Transmission Date: 20220423
  Serious: No
  Sender: FDA-Public Use
  Company Number: US-PERRIGO-21US029647

PATIENT
  Age: 78 Year
  Sex: Male
  Weight: 86.168 kg

DRUGS (2)
  1. TRETINOIN [Suspect]
     Active Substance: TRETINOIN
     Indication: Pseudofolliculitis
     Dosage: SMALL AMOUNT, QD
     Route: 061
     Dates: start: 20211011
  2. IMIQUIMOD [Suspect]
     Active Substance: IMIQUIMOD
     Indication: Pseudofolliculitis
     Dosage: 5%; 1 PACKET, NIGHTLY
     Route: 061
     Dates: start: 20210924

REACTIONS (3)
  - Application site pruritus [Not Recovered/Not Resolved]
  - Application site irritation [Not Recovered/Not Resolved]
  - Off label use [Unknown]

NARRATIVE: CASE EVENT DATE: 20211001
